FAERS Safety Report 5704270-9 (Version None)
Quarter: 2008Q2

REPORT INFORMATION
  Report Type: 
  Country: None (occurrence: None)
  Receive Date: 20080414
  Receipt Date: 20080408
  Transmission Date: 20081010
  Serious: Yes (Other)
  Sender: FDA-Public Use
  Company Number: BR-AVENTIS-200812952GDDC

PATIENT
  Age: 22 Year
  Sex: Female
  Weight: 53 kg

DRUGS (3)
  1. FLAGYL [Suspect]
     Indication: HELMINTHIC INFECTION
     Dosage: DOSE QUANTITY: 1
     Route: 048
     Dates: start: 20080330, end: 20080331
  2. FLAGYL [Suspect]
     Indication: GIARDIASIS
     Dosage: DOSE QUANTITY: 1
     Route: 048
     Dates: start: 20080330, end: 20080331
  3. MEBENDAZOLE [Concomitant]
     Dosage: DOSE: UNK

REACTIONS (13)
  - ABDOMINAL DISCOMFORT [None]
  - ASTHENIA [None]
  - BALANCE DISORDER [None]
  - CHEST PAIN [None]
  - DIZZINESS [None]
  - DYSPNOEA [None]
  - HEADACHE [None]
  - HYPERHIDROSIS [None]
  - HYPERSENSITIVITY [None]
  - HYPOTENSION [None]
  - SYNCOPE [None]
  - TREMOR [None]
  - VOMITING [None]
